FAERS Safety Report 15537301 (Version 4)
Quarter: 2019Q3

REPORT INFORMATION
  Report Type: Spontaneous
  Country: JP (occurrence: JP)
  Receive Date: 20181022
  Receipt Date: 20190813
  Transmission Date: 20191004
  Serious: Yes (Death)
  Sender: FDA-Public Use
  Company Number: JP-PFIZER INC-2018428568

PATIENT
  Age: 38 Year
  Sex: Male

DRUGS (9)
  1. FLUCONAZOLE. [Suspect]
     Active Substance: FLUCONAZOLE
     Indication: PENICILLIUM INFECTION
     Dosage: UNK
     Dates: start: 199407, end: 1995
  2. ACICLOVIR [Suspect]
     Active Substance: ACYCLOVIR
     Indication: SEBORRHOEIC DERMATITIS
     Dosage: UNK
     Route: 042
     Dates: end: 1995
  3. FLUCONAZOLE. [Suspect]
     Active Substance: FLUCONAZOLE
     Indication: OPPORTUNISTIC INFECTION
  4. FOSCARNET [Suspect]
     Active Substance: FOSCARNET
     Indication: CYTOMEGALOVIRUS INFECTION
     Dosage: UNK
     Dates: start: 199508, end: 1995
  5. AZIDOTHYMIDINE [Concomitant]
     Active Substance: ZIDOVUDINE
     Indication: ACQUIRED IMMUNODEFICIENCY SYNDROME
     Dosage: UNK
     Dates: start: 199407
  6. CLARITHROMYCIN. [Suspect]
     Active Substance: CLARITHROMYCIN
     Indication: OPPORTUNISTIC INFECTION
     Dosage: UNK
     Dates: start: 199407, end: 1995
  7. VANCOMYCIN [Suspect]
     Active Substance: VANCOMYCIN
     Indication: STAPHYLOCOCCAL INFECTION
     Dosage: UNK
     Dates: start: 199508, end: 1995
  8. DIDANOSINE. [Concomitant]
     Active Substance: DIDANOSINE
     Indication: ACQUIRED IMMUNODEFICIENCY SYNDROME
     Dosage: UNK
     Dates: start: 199407
  9. PENTAMIDINE ISETIONATE [Suspect]
     Active Substance: PENTAMIDINE ISETHIONATE
     Indication: OPPORTUNISTIC INFECTION
     Dosage: UNK
     Dates: start: 199407, end: 1995

REACTIONS (1)
  - Drug ineffective [Fatal]
